FAERS Safety Report 10201316 (Version 1)
Quarter: 2014Q2

REPORT INFORMATION
  Report Type: Spontaneous
  Country: DK (occurrence: DK)
  Receive Date: 20140528
  Receipt Date: 20140528
  Transmission Date: 20141212
  Serious: Yes (Other)
  Sender: FDA-Public Use
  Company Number: DK-MERCK-1405DNK011414

PATIENT
  Age: 51 Year
  Sex: Female

DRUGS (5)
  1. PEGINTRON [Suspect]
     Indication: POLYCYTHAEMIA VERA
     Dosage: STYRKE: 50 MIKROGRAM/0,5 ML
     Route: 058
     Dates: start: 20130301, end: 20130726
  2. ALLOPURINOL [Concomitant]
  3. BUDESONIDE [Concomitant]
  4. ELTROXIN [Concomitant]
  5. HJERTEMAGNYL [Concomitant]

REACTIONS (1)
  - Sudden hearing loss [Recovered/Resolved]
